FAERS Safety Report 21193296 (Version 3)
Quarter: 2023Q2

REPORT INFORMATION
  Report Type: Spontaneous
  Country: US (occurrence: US)
  Receive Date: 20220810
  Receipt Date: 20230411
  Transmission Date: 20230721
  Serious: Yes (Other)
  Sender: FDA-Public Use
  Company Number: US-BRISTOL-MYERS SQUIBB COMPANY-2022-085854

PATIENT
  Age: 77 Year
  Sex: Male

DRUGS (1)
  1. POMALYST [Suspect]
     Active Substance: POMALIDOMIDE
     Indication: Product used for unknown indication
     Dosage: FREQUENCY: OTHER
     Route: 048
     Dates: start: 20200410

REACTIONS (6)
  - Malignant neoplasm progression [Unknown]
  - Pneumonia [Unknown]
  - Localised infection [Recovered/Resolved]
  - COVID-19 [Unknown]
  - Pulmonary oedema [Unknown]
  - Epistaxis [Unknown]

NARRATIVE: CASE EVENT DATE: 20220411
